FAERS Safety Report 11151384 (Version 1)
Quarter: 2015Q2

REPORT INFORMATION
  Report Type: Report from Study
  Country: US (occurrence: US)
  Receive Date: 20150601
  Receipt Date: 20150601
  Transmission Date: 20150821
  Serious: Yes (Hospitalization, Other)
  Sender: FDA-Public Use
  Company Number: US-BIOGENIDEC-2015BI071225

PATIENT
  Age: 59 Year
  Sex: Female

DRUGS (1)
  1. TYSABRI [Suspect]
     Active Substance: NATALIZUMAB
     Indication: MULTIPLE SCLEROSIS
     Route: 042
     Dates: start: 20070629

REACTIONS (23)
  - Decubitus ulcer [Not Recovered/Not Resolved]
  - Perichondritis [Recovered/Resolved]
  - Tooth loss [Recovered/Resolved]
  - External ear disorder [Unknown]
  - Ear discomfort [Not Recovered/Not Resolved]
  - Chronic kidney disease [Not Recovered/Not Resolved]
  - Body temperature increased [Recovered/Resolved]
  - Lymphoedema [Not Recovered/Not Resolved]
  - Panic attack [Recovered/Resolved]
  - Osteomyelitis [Recovered/Resolved]
  - Fall [Recovered/Resolved]
  - Urinary tract infection [Not Recovered/Not Resolved]
  - Tympanic membrane disorder [Unknown]
  - Back pain [Unknown]
  - Stomatitis [Recovered/Resolved]
  - Infection [Recovered/Resolved]
  - Memory impairment [Not Recovered/Not Resolved]
  - Cyst [Recovered/Resolved]
  - Sepsis [Recovered/Resolved]
  - Pollakiuria [Not Recovered/Not Resolved]
  - Ear injury [Not Recovered/Not Resolved]
  - Multiple sclerosis relapse [Recovered/Resolved]
  - Herpes zoster [Recovered/Resolved]

NARRATIVE: CASE EVENT DATE: 201303
